FAERS Safety Report 10653890 (Version 1)
Quarter: 2014Q4

REPORT INFORMATION
  Report Type: Spontaneous
  Country: US (occurrence: None)
  Receive Date: 20141212
  Receipt Date: 20141212
  Transmission Date: 20150529
  Serious: Yes (Hospitalization, Other)
  Sender: FDA-Public Use
  Company Number: 2014/092

PATIENT
  Age: 17 Year
  Sex: Male

DRUGS (4)
  1. AMLODIPINE [Suspect]
     Active Substance: AMLODIPINE BESYLATE
     Indication: POSTERIOR REVERSIBLE ENCEPHALOPATHY SYNDROME
  2. FUROSEMIDE. [Suspect]
     Active Substance: FUROSEMIDE
  3. DAPSONE. [Suspect]
     Active Substance: DAPSONE
  4. LEVETIRACETAM (NO PREF. NAME) [Suspect]
     Active Substance: LEVETIRACETAM

REACTIONS (1)
  - Drug reaction with eosinophilia and systemic symptoms [None]
